FAERS Safety Report 10201228 (Version 3)
Quarter: 2014Q2

REPORT INFORMATION
  Report Type: Spontaneous
  Country: RU (occurrence: RU)
  Receive Date: 20140528
  Receipt Date: 20140609
  Transmission Date: 20141212
  Serious: Yes (Hospitalization)
  Sender: FDA-Public Use
  Company Number: RU-SA-2014SA061899

PATIENT
  Age: 65 Year
  Sex: Male
  Weight: 85 kg

DRUGS (4)
  1. PLAVIX [Suspect]
     Indication: ANGINA UNSTABLE
     Route: 048
     Dates: start: 20140404, end: 20140430
  2. CARDIOMAGNYL [Concomitant]
     Route: 048
  3. CONCOR [Concomitant]
     Route: 048
  4. LIPRIMAR [Concomitant]
     Route: 048

REACTIONS (3)
  - Aortic stenosis [Recovering/Resolving]
  - Platelet aggregation increased [Recovering/Resolving]
  - Drug ineffective [Unknown]
